FAERS Safety Report 22299109 (Version 15)
Quarter: 2024Q2

REPORT INFORMATION
  Report Type: Report from Study
  Country: MX (occurrence: MX)
  Receive Date: 20230509
  Receipt Date: 20240403
  Transmission Date: 20240716
  Serious: Yes (Other)
  Sender: FDA-Public Use
  Company Number: MX-TAKEDA-2023TUS044691

PATIENT
  Age: 20 Year
  Sex: Male

DRUGS (3)
  1. VEDOLIZUMAB [Suspect]
     Active Substance: VEDOLIZUMAB
     Indication: Colitis ulcerative
     Dosage: 300 MILLIGRAM
     Route: 042
     Dates: start: 20230429
  2. ACETAMINOPHEN [Suspect]
     Active Substance: ACETAMINOPHEN
     Indication: Product used for unknown indication
     Dosage: UNK
     Route: 065
  3. ONDANSETRON [Suspect]
     Active Substance: ONDANSETRON
     Indication: Product used for unknown indication
     Dosage: UNK
     Route: 065

REACTIONS (30)
  - Haematochezia [Not Recovered/Not Resolved]
  - Suicidal ideation [Unknown]
  - Nervousness [Not Recovered/Not Resolved]
  - Tachycardia [Recovering/Resolving]
  - Dyschezia [Not Recovered/Not Resolved]
  - Anxiety [Not Recovered/Not Resolved]
  - Abdominal pain upper [Unknown]
  - Drug ineffective [Recovering/Resolving]
  - Hypoaesthesia [Recovering/Resolving]
  - Blood pressure abnormal [Recovering/Resolving]
  - Heart rate abnormal [Recovering/Resolving]
  - Weight decreased [Recovering/Resolving]
  - Depression [Not Recovered/Not Resolved]
  - Hypophagia [Not Recovered/Not Resolved]
  - Wrong technique in product usage process [Unknown]
  - Gastrointestinal pain [Not Recovered/Not Resolved]
  - Inflammation [Recovered/Resolved]
  - Gastrointestinal inflammation [Not Recovered/Not Resolved]
  - Asthenia [Not Recovered/Not Resolved]
  - Blood iron decreased [Not Recovered/Not Resolved]
  - Insomnia [Not Recovered/Not Resolved]
  - Dizziness [Not Recovered/Not Resolved]
  - Abdominal pain [Not Recovered/Not Resolved]
  - Constipation [Recovered/Resolved]
  - Headache [Recovering/Resolving]
  - Pain in extremity [Recovering/Resolving]
  - Fatigue [Not Recovered/Not Resolved]
  - Nausea [Unknown]
  - Influenza [Not Recovered/Not Resolved]
  - Decreased appetite [Not Recovered/Not Resolved]

NARRATIVE: CASE EVENT DATE: 20230429
